FAERS Safety Report 7989487-5 (Version None)
Quarter: 2011Q4

REPORT INFORMATION
  Report Type: 
  Country: None (occurrence: None)
  Receive Date: 20111007
  Receipt Date: 20110628
  Transmission Date: 20120403
  Serious: No
  Sender: FDA-Public Use
  Company Number: 2011HGS-002376

PATIENT
  Sex: 0

DRUGS (1)
  1. BENLYSTA [Suspect]
     Indication: SYSTEMIC LUPUS ERYTHEMATOSUS
     Dosage: 1 IN 28 D, INTRAVENOUS DRIP
     Route: 041
     Dates: start: 20110601

REACTIONS (4)
  - OEDEMA PERIPHERAL [None]
  - INJECTION SITE SWELLING [None]
  - INFUSION RELATED REACTION [None]
  - INFUSION SITE EXTRAVASATION [None]
